FAERS Safety Report 23533161 (Version 1)
Quarter: 2024Q1

REPORT INFORMATION
  Report Type: Spontaneous
  Country: ES (occurrence: ES)
  Receive Date: 20240216
  Receipt Date: 20240216
  Transmission Date: 20240410
  Serious: Yes (Hospitalization)
  Sender: FDA-Public Use
  Company Number: None

PATIENT
  Age: 96 Year
  Sex: Male

DRUGS (12)
  1. LERCANIDIPINE [Suspect]
     Active Substance: LERCANIDIPINE
     Indication: Hypertension
     Dosage: 20.0 MG EVERY 24 HOURS, LERCANIDIPINO (2757A)
     Route: 048
     Dates: start: 20230303, end: 20230726
  2. PANTOPRAZOLE RATIO PHARM [Concomitant]
     Indication: Gastritis
     Dosage: 20.0 MG DE
     Route: 048
     Dates: start: 20110303
  3. RAMIPRIL [Suspect]
     Active Substance: RAMIPRIL
     Indication: Hypertension
     Dosage: RAMIPRIL (2497A)
     Route: 048
     Dates: start: 20200521, end: 20230726
  4. ELIQUIS [Concomitant]
     Active Substance: APIXABAN
     Indication: Atrial fibrillation
     Dosage: 2.5 MG C/12 H, 60 TABLETS
     Route: 048
     Dates: start: 20230620
  5. FUROSEMIDE [Suspect]
     Active Substance: FUROSEMIDE
     Indication: Hypertension
     Dosage: 40.0 MG C/12 H, FUROSEMIDA (1615A)
     Route: 048
     Dates: start: 20230620, end: 20230726
  6. ATORVASTATIN CALCIUM [Concomitant]
     Active Substance: ATORVASTATIN CALCIUM
     Indication: Diabetes mellitus
     Dosage: 20.0 MG CE, 28 TABLETS
     Route: 048
     Dates: start: 20090407
  7. LORAZEPAM [Concomitant]
     Active Substance: LORAZEPAM
     Indication: Osteoarthritis
     Dosage: 1.0 MG C/24 H
     Route: 048
     Dates: start: 20140522
  8. LORAZEPAM [Concomitant]
     Active Substance: LORAZEPAM
     Indication: Osteoarthritis
     Dosage: 1.0 MG C/24 H, 50 TABLETS
     Route: 048
     Dates: start: 20140522
  9. ACETAMINOPHEN [Concomitant]
     Active Substance: ACETAMINOPHEN
     Indication: Arthralgia
     Dosage: 1.0 G DECOCE,  TARBIS FARMA EFG, 40 TABLETS
     Route: 048
     Dates: start: 20161124
  10. BISOPROLOL [Concomitant]
     Active Substance: BISOPROLOL\BISOPROLOL FUMARATE
     Indication: Atrial fibrillation
     Dosage: EFG, 20 TABLETS
     Route: 048
     Dates: start: 20230621
  11. METFORMIN HYDROCHLORIDE [Concomitant]
     Active Substance: METFORMIN HYDROCHLORIDE
     Indication: Diabetes mellitus
     Dosage: 850.0 MG C/12 H, 50 TABLETS
     Route: 048
     Dates: start: 20090407
  12. CALCIFEDIOL [Concomitant]
     Active Substance: CALCIFEDIOL
     Indication: Vitamin D decreased
     Dosage: 16000.0 UI EVERY 15 DAYS, 10 DRINKABLE AMPOULES OF 1.5 ML
     Route: 065
     Dates: start: 20230621

REACTIONS (1)
  - Hypotension [Recovered/Resolved]

NARRATIVE: CASE EVENT DATE: 20230726
